FAERS Safety Report 5149051-2 (Version None)
Quarter: 2006Q4

REPORT INFORMATION
  Report Type: 
  Country: None (occurrence: None)
  Receive Date: 20061108
  Receipt Date: 20061107
  Transmission Date: 20070319
  Serious: Yes (Hospitalization)
  Sender: FDA-Public Use
  Company Number: 06H-163-0310962-00

PATIENT
  Sex: 0

DRUGS (1)
  1. DOBUTAMINE HCL [Suspect]
     Indication: STRESS ECHOCARDIOGRAM
     Dosage: 5-40 MCG/KG/MIN, INC DOSE AT 3-MIN-INTERV, IV INFUSION
     Route: 042

REACTIONS (1)
  - ATRIAL FIBRILLATION [None]
